FAERS Safety Report 8096020-9 (Version None)
Quarter: 2012Q1

REPORT INFORMATION
  Report Type: 
  Country: None (occurrence: None)
  Receive Date: 20120129
  Receipt Date: 20111223
  Transmission Date: 20120608
  Serious: No
  Sender: FDA-Public Use
  Company Number: US-ABBOTT-11P-163-0887017-00

PATIENT
  Sex: Female

DRUGS (17)
  1. DEXTROAMPHETAMINE [Concomitant]
     Indication: PRODUCT USED FOR UNKNOWN INDICATION
     Dosage: TOLD TO INCREASE BUT PATIENT HAS NOT
  2. TRAZODONE HCL [Concomitant]
     Indication: DEPRESSION
     Dosage: EVERY NIGHT
  3. FIORICET [Concomitant]
     Indication: PAIN
     Dosage: #3
  4. LITHIUM CARBONATE [Concomitant]
     Indication: BIPOLAR DISORDER
  5. TRAMADOL HCL [Concomitant]
     Indication: PAIN
  6. PHENERGAN [Concomitant]
     Indication: PRODUCT USED FOR UNKNOWN INDICATION
  7. NAPROXEN [Concomitant]
     Indication: PAIN
  8. PHENERGAN [Concomitant]
  9. SUMATRIPTAN [Concomitant]
     Indication: MIGRAINE
     Route: 045
  10. LIDOCAINE [Concomitant]
     Indication: PRODUCT USED FOR UNKNOWN INDICATION
  11. LACMICTAL [Concomitant]
     Indication: DEPRESSION
     Dosage: AT NIGHT
  12. FOLIC ACID [Concomitant]
     Indication: PRODUCT USED FOR UNKNOWN INDICATION
     Dosage: 2MG EVERYDAY WHEN CORNERS OF MOUTH SPLIT
  13. SOMA [Concomitant]
     Indication: THERAPY REGIMEN CHANGED
  14. ACTONEL [Concomitant]
     Indication: PRODUCT USED FOR UNKNOWN INDICATION
  15. HUMIRA [Suspect]
     Indication: RHEUMATOID ARTHRITIS
     Dates: start: 20060101
  16. AMBIEN [Concomitant]
     Indication: INSOMNIA
     Dosage: 1 AS NEEDED
  17. LOMOTIL [Concomitant]
     Indication: DIARRHOEA

REACTIONS (8)
  - BONE LOSS [None]
  - BLOOD CALCIUM INCREASED [None]
  - SINUSITIS [None]
  - MUSCULOSKELETAL PAIN [None]
  - FATIGUE [None]
  - MUSCULOSKELETAL STIFFNESS [None]
  - ONYCHOMYCOSIS [None]
  - EXOSTOSIS [None]
